FAERS Safety Report 11869725 (Version 3)
Quarter: 2016Q1

REPORT INFORMATION
  Report Type: Spontaneous
  Country: IT (occurrence: IT)
  Receive Date: 20151228
  Receipt Date: 20160211
  Transmission Date: 20160526
  Serious: Yes (Other)
  Sender: FDA-Public Use
  Company Number: IT-BEH-2015057297

PATIENT
  Age: 82 Year
  Sex: Female

DRUGS (1)
  1. INTRAVENOUS IMMUNOGLOBULIN [Suspect]
     Active Substance: HUMAN IMMUNOGLOBULIN G
     Indication: TOXIC EPIDERMAL NECROLYSIS
     Route: 042

REACTIONS (3)
  - Drug ineffective for unapproved indication [Unknown]
  - Toxic epidermal necrolysis [Unknown]
  - General physical health deterioration [Unknown]
